FAERS Safety Report 7425577-3 (Version None)
Quarter: 2011Q2

REPORT INFORMATION
  Report Type: 
  Country: None (occurrence: None)
  Receive Date: 20110420
  Receipt Date: 20100510
  Transmission Date: 20111010
  Serious: No
  Sender: FDA-Public Use
  Company Number: US-ASTRAZENECA-2010SE16355

PATIENT
  Age: 26072 Day
  Sex: Male
  Weight: 111.1 kg

DRUGS (1)
  1. CASODEX [Suspect]
     Route: 048
     Dates: start: 20080101

REACTIONS (4)
  - THIRST [None]
  - RESTLESSNESS [None]
  - HYPOAESTHESIA [None]
  - SOMNOLENCE [None]
